FAERS Safety Report 7535798-7 (Version None)
Quarter: 2011Q2

REPORT INFORMATION
  Report Type: 
  Country: None (occurrence: None)
  Receive Date: 20110608
  Receipt Date: 20110608
  Transmission Date: 20111010
  Serious: Yes (Other)
  Sender: FDA-Public Use
  Company Number: None

PATIENT
  Age: 53 Year
  Sex: Female
  Weight: 79.8331 kg

DRUGS (1)
  1. GAMUNEX [Suspect]
     Indication: POLYNEUROPATHY
     Dosage: 56MG EVERY 3 WKS IV
     Route: 042
     Dates: start: 20110526

REACTIONS (2)
  - PRURITUS [None]
  - PRODUCT SUBSTITUTION ISSUE [None]
